FAERS Safety Report 4610177-0 (Version None)
Quarter: 2005Q1

REPORT INFORMATION
  Report Type: 
  Country: None (occurrence: None)
  Receive Date: 20050314
  Receipt Date: 20050301
  Transmission Date: 20050727
  Serious: Yes (Other)
  Sender: FDA-Public Use
  Company Number: HQWYE130721DEC04

PATIENT
  Age: 78 Year
  Sex: Male

DRUGS (8)
  1. CORDARONE [Suspect]
     Dosage: 200 MG 1X PER 2 DAY ORAL
     Route: 048
     Dates: start: 20020101, end: 20041201
  2. PREVISCAN (FLUINDIONE, ) [Suspect]
     Dosage: ORAL
     Route: 048
  3. PREVISCAN (FLUINDIONE, ) [Suspect]
     Dosage: NEW DAILY DOSE ORAL
     Route: 048
  4. APROVEL (IRBESARTAN) [Concomitant]
  5. ALLOPURINOL [Concomitant]
  6. TAHOR (ATORVASTATIN) [Concomitant]
  7. LORAZEPAM [Concomitant]
  8. XATRAL (ALFUZOSIN) [Concomitant]

REACTIONS (3)
  - DRUG INTERACTION [None]
  - HYPERTHYROIDISM [None]
  - INTERNATIONAL NORMALISED RATIO INCREASED [None]
